FAERS Safety Report 7021299-1 (Version None)
Quarter: 2010Q3

REPORT INFORMATION
  Report Type: 
  Country: None (occurrence: None)
  Receive Date: 20100929
  Receipt Date: 20100917
  Transmission Date: 20110219
  Serious: No
  Sender: FDA-Public Use
  Company Number: US-PFIZER INC-2007007315

PATIENT
  Sex: Female
  Weight: 71 kg

DRUGS (23)
  1. CHANTIX [Suspect]
     Indication: SMOKING CESSATION THERAPY
     Dosage: UNK
     Dates: start: 20061101, end: 20070101
  2. CHANTIX [Suspect]
     Dosage: UNK
     Route: 048
     Dates: start: 20071201, end: 20080301
  3. CHANTIX [Suspect]
     Dosage: UNK
     Dates: start: 20081201, end: 20090801
  4. CHANTIX [Suspect]
     Dosage: UNK
     Dates: start: 20100101
  5. THEODUR ^ELAN^ [Concomitant]
     Dosage: UNK
  6. ALBUTEROL [Concomitant]
     Dosage: 4 MG, TABLET 2 OR 3 TIMES A DAY
     Route: 048
  7. ALBUTEROL [Concomitant]
     Dosage: 2 PUFFS EVERY 4 HOURS
     Route: 055
  8. ADVAIR DISKUS 100/50 [Concomitant]
     Dosage: 500/50 MG, 2X/DAY
  9. ATROVENT [Concomitant]
     Dosage: UNK
  10. PAXIL [Concomitant]
     Dosage: UNK
  11. PREVACID [Concomitant]
     Dosage: 30 MG, 1X/DAY
  12. TRAZODONE HCL [Concomitant]
     Dosage: 200 MG, 1X/DAY
  13. PREDNISONE [Concomitant]
     Indication: LUNG DISORDER
     Dosage: 50 MG, UNK
  14. TENUATE DOSPAN [Concomitant]
     Dosage: 75 MG, 1X/DAY
  15. NICOPATCH [Concomitant]
  16. REGLAN [Concomitant]
     Dosage: 10 MG, 3X/DAY
  17. ZOCOR [Concomitant]
     Dosage: 20 MG, DAILY
  18. FOSAMAX [Concomitant]
     Dosage: 70 MG, WEEKLY
  19. CELEBREX [Concomitant]
     Dosage: 200 MG, 2X/DAY
  20. FIORINAL [Concomitant]
     Indication: HEADACHE
     Dosage: UNK, AS NEEDED
  21. IMITREX [Concomitant]
     Indication: MIGRAINE
     Dosage: 25 MG, AS NEEDED
  22. OXYCONTIN [Concomitant]
     Indication: INTERVERTEBRAL DISC DEGENERATION
     Dosage: 10 MG,EVERY 5 HOURS AS NEEDED
  23. PARAFON FORTE [Concomitant]
     Indication: PAIN
     Dosage: 500 MG, EVERY 5 HOURS AS NEEDED

REACTIONS (4)
  - CRYING [None]
  - FATIGUE [None]
  - LETHARGY [None]
  - SOMNOLENCE [None]
